FAERS Safety Report 9380736 (Version 2)
Quarter: 2013Q3

REPORT INFORMATION
  Report Type: Spontaneous
  Country: US (occurrence: US)
  Receive Date: 20130702
  Receipt Date: 20130719
  Transmission Date: 20140515
  Serious: Yes (Hospitalization, Other)
  Sender: FDA-Public Use
  Company Number: US-PFIZER INC-2013194857

PATIENT
  Age: 73 Year
  Sex: Female
  Weight: 77.1 kg

DRUGS (10)
  1. ENBREL [Suspect]
     Dosage: 50 ^A SHOT^ ONCE A DAY
     Dates: start: 201004, end: 201104
  2. DOXORUBICIN HCL [Suspect]
     Indication: HEPATIC CANCER
     Dosage: UNK
     Dates: start: 201105, end: 201112
  3. PREDNISONE [Suspect]
     Indication: HEPATIC CANCER
     Dosage: UNK
     Dates: start: 201105, end: 201112
  4. CYCLOPHOSPHAMIDE [Suspect]
     Indication: HEPATIC CANCER
     Dosage: UNK
     Dates: start: 201105, end: 201112
  5. RITUXIMAB [Suspect]
     Indication: HEPATIC CANCER
     Dosage: UNK
     Dates: start: 201105, end: 201112
  6. VINCRISTINE [Suspect]
     Dosage: UNK
     Dates: start: 201105, end: 201112
  7. KERAFOAM 60 GM [Suspect]
     Indication: ACNE
     Dosage: UNK
     Route: 061
     Dates: start: 20101029, end: 2010
  8. RETIN A [Concomitant]
     Dosage: UNK
  9. LEVOTHYROXINE [Concomitant]
     Dosage: 0.125 MG, 1X/DAY
     Dates: start: 2004
  10. CRESTOR [Concomitant]
     Dosage: 25 MG, 1X/DAY
     Dates: start: 2001

REACTIONS (8)
  - Renal failure [Unknown]
  - Coma [Unknown]
  - Hepatic cancer stage IV [Recovering/Resolving]
  - Type 2 diabetes mellitus [Not Recovered/Not Resolved]
  - Diabetes mellitus inadequate control [Unknown]
  - Neuropathy peripheral [Not Recovered/Not Resolved]
  - Skin lesion [Unknown]
  - Off label use [Unknown]
